FAERS Safety Report 25724306 (Version 2)
Quarter: 2025Q3

REPORT INFORMATION
  Report Type: Spontaneous
  Country: US (occurrence: US)
  Receive Date: 20250826
  Receipt Date: 20250924
  Transmission Date: 20251021
  Serious: No
  Sender: ROCHE
  Company Number: US-ROCHE-10000371238

PATIENT
  Age: 35 Year
  Sex: Male

DRUGS (2)
  1. HEMLIBRA [Suspect]
     Active Substance: EMICIZUMAB-KXWH
     Indication: Factor VIII deficiency
     Dosage: STRENGTH: 150MG/ML AND 105MG/0.7ML
     Route: 058
     Dates: start: 202501
  2. HEMLIBRA [Suspect]
     Active Substance: EMICIZUMAB-KXWH
     Indication: Factor VIII deficiency
     Route: 058
     Dates: start: 20250117

REACTIONS (4)
  - Skin laceration [Unknown]
  - Haemorrhage [Unknown]
  - Crohn^s disease [Unknown]
  - Product preparation error [Unknown]

NARRATIVE: CASE EVENT DATE: 20250814
